FAERS Safety Report 7902625-5 (Version None)
Quarter: 2011Q4

REPORT INFORMATION
  Report Type: 
  Country: None (occurrence: None)
  Receive Date: 20111108
  Receipt Date: 20110811
  Transmission Date: 20120403
  Serious: Yes (Other)
  Sender: FDA-Public Use
  Company Number: US-ROCHE-728213

PATIENT
  Sex: Female

DRUGS (4)
  1. PEGASYS [Suspect]
     Indication: HEPATITIS C
     Dosage: FORM: PFS
     Route: 065
  2. RIBAVARIN [Suspect]
  3. PEGASYS [Suspect]
  4. RIBAVARIN [Suspect]
     Indication: HEPATITIS C
     Route: 065

REACTIONS (6)
  - CAROTID ARTERY OCCLUSION [None]
  - PLATELET COUNT DECREASED [None]
  - MALAISE [None]
  - INJECTION SITE RASH [None]
  - RED BLOOD CELL COUNT DECREASED [None]
  - WHITE BLOOD CELL COUNT DECREASED [None]
